FAERS Safety Report 7035753-X (Version None)
Quarter: 2010Q4

REPORT INFORMATION
  Report Type: 
  Country: None (occurrence: None)
  Receive Date: 20101008
  Receipt Date: 20101001
  Transmission Date: 20110411
  Serious: Yes (Hospitalization)
  Sender: FDA-Public Use
  Company Number: JP-BRISTOL-MYERS SQUIBB COMPANY-15203920

PATIENT
  Age: 43 Year
  Sex: Male
  Weight: 82 kg

DRUGS (17)
  1. ERBITUX [Suspect]
     Indication: RECTAL CANCER
     Dosage: INIT DOSE: 400MG/M2(8APR10)REDUCED TO 250MG/M2(15APR10);RECENT INF (9TH):24JUN10.
     Route: 042
     Dates: start: 20100408, end: 20100408
  2. CAMPTOSAR [Concomitant]
     Indication: RECTAL CANCER
     Route: 042
     Dates: start: 20100408
  3. RESTAMIN [Concomitant]
     Indication: PREMEDICATION
     Route: 048
     Dates: start: 20100408
  4. DECADRON [Concomitant]
     Indication: PREMEDICATION
     Dosage: 8MG,1IN1WK (INTRAVENOUS;08APR10); 1MG,2IN1D (ORAL;27APR-20APR10); 2MG, ORAL(27APR-20JUN10)
     Route: 042
     Dates: start: 20100408, end: 20100620
  5. DECADRON [Concomitant]
     Indication: ANTIEMETIC SUPPORTIVE CARE
     Dosage: 8MG,1IN1WK (INTRAVENOUS;08APR10); 1MG,2IN1D (ORAL;27APR-20APR10); 2MG, ORAL(27APR-20JUN10)
     Route: 042
     Dates: start: 20100408, end: 20100620
  6. LOXONIN [Concomitant]
     Indication: PAIN
     Dosage: 1DF=60 MG X1 TABLET.
     Route: 048
     Dates: start: 20090221, end: 20100626
  7. SELBEX [Concomitant]
     Dosage: 1 DF=50MG X 1 TABLET.
     Route: 048
     Dates: start: 20100221, end: 20100626
  8. GABAPEN [Concomitant]
     Indication: PAIN
     Dosage: 1DF=200MG X 1 TABLET.
     Route: 048
     Dates: start: 20100415, end: 20100626
  9. KYTRIL [Concomitant]
     Indication: ANTIEMETIC SUPPORTIVE CARE
     Dosage: 1MGX2 TABS(SID ORALLY
     Route: 048
     Dates: start: 20100427, end: 20100626
  10. OXYCONTIN [Concomitant]
     Indication: PAIN
     Dosage: 5MG X 3 TABS
     Route: 048
     Dates: start: 20100415, end: 20100626
  11. OXINORM [Concomitant]
     Indication: PAIN
     Route: 048
     Dates: start: 20100415, end: 20100626
  12. MAGMITT [Concomitant]
     Indication: DIARRHOEA
     Dosage: 1980 MG ORALLY AS CATHARTIC(22APR10-20MAY2010)
     Route: 048
     Dates: start: 20100415, end: 20100626
  13. AZUNOL [Concomitant]
     Indication: STOMATITIS
     Dosage: GARGLE LIQUID
     Dates: start: 20100425
  14. AZUNOL [Concomitant]
     Indication: PROPHYLAXIS
     Dosage: GARGLE LIQUID
     Dates: start: 20100425
  15. SEROTONE [Concomitant]
     Indication: PROPHYLAXIS OF NAUSEA AND VOMITING
     Route: 041
     Dates: start: 20100408, end: 20100624
  16. TAKEPRON [Concomitant]
     Indication: PROPHYLAXIS OF NAUSEA AND VOMITING
     Route: 048
     Dates: start: 20091228, end: 20100520
  17. AMARYL [Concomitant]
     Indication: DIABETES MELLITUS
     Route: 048
     Dates: start: 20090223, end: 20100520

REACTIONS (1)
  - PANCREATITIS ACUTE [None]
